FAERS Safety Report 21767398 (Version 1)
Quarter: 2022Q4

REPORT INFORMATION
  Report Type: Spontaneous
  Country: US (occurrence: US)
  Receive Date: 20221222
  Receipt Date: 20221222
  Transmission Date: 20230112
  Serious: No
  Sender: FDA-Public Use
  Company Number: US-SA-SAC20221221000340

PATIENT
  Age: 3 Year
  Sex: Male

DRUGS (2)
  1. ELOCTATE [Suspect]
     Active Substance: EFMOROCTOCOG ALFA
     Indication: Haemorrhage
     Dosage: 831 U, PRN
     Route: 042
  2. ELOCTATE [Suspect]
     Active Substance: EFMOROCTOCOG ALFA
     Indication: Haemorrhage
     Dosage: 831 U, PRN
     Route: 042

REACTIONS (3)
  - Influenza [Unknown]
  - Pharyngitis streptococcal [Unknown]
  - Pyrexia [Unknown]

NARRATIVE: CASE EVENT DATE: 20221219
